FAERS Safety Report 9019438 (Version 2)
Quarter: 2013Q1

REPORT INFORMATION
  Report Type: Spontaneous
  Country: FR (occurrence: FR)
  Receive Date: 20130118
  Receipt Date: 20130227
  Transmission Date: 20140127
  Serious: Yes (Other)
  Sender: FDA-Public Use
  Company Number: FR-VERTEX PHARMACEUTICALS INC.-2013-000776

PATIENT
  Age: 63 None
  Sex: Male
  Weight: 72 kg

DRUGS (8)
  1. INCIVO [Suspect]
     Indication: HEPATITIS C
     Dosage: DOSAGE FORM: TABLET
     Route: 048
     Dates: start: 20120201, end: 20120418
  2. PEGASYS [Suspect]
     Indication: HEPATITIS C
     Dosage: UNK, QW
     Route: 058
     Dates: start: 20120201, end: 20130204
  3. COPEGUS [Suspect]
     Indication: HEPATITIS C
     Dosage: DOSAGE FORM: UNSPECIFIED
     Route: 048
     Dates: start: 20120201, end: 20130204
  4. DOMPERIDONE [Concomitant]
     Indication: NAUSEA
     Dosage: FOR 3 DAYS
     Route: 048
     Dates: start: 20130221
  5. SPIRIVA [Concomitant]
     Indication: CHRONIC OBSTRUCTIVE PULMONARY DISEASE
     Dosage: UNK, QD
     Route: 055
  6. SPIRIVA [Concomitant]
     Indication: ASTHMA
  7. OMEPRAZOLE [Concomitant]
     Dosage: 20
  8. AVLOCARDYL [Concomitant]
     Dosage: 40

REACTIONS (3)
  - Femoral neck fracture [Recovered/Resolved]
  - Viral load [Unknown]
  - Nausea [Unknown]
